FAERS Safety Report 7391646-X (Version None)
Quarter: 2011Q2

REPORT INFORMATION
  Report Type: 
  Country: None (occurrence: None)
  Receive Date: 20110404
  Receipt Date: 20110325
  Transmission Date: 20111010
  Serious: Yes (Other)
  Sender: FDA-Public Use
  Company Number: US-AMGEN-USASP2011016189

PATIENT
  Age: 49 Year
  Sex: Female

DRUGS (4)
  1. PLAQUENIL [Concomitant]
     Dosage: 1 MG, UNK
     Dates: start: 20080101
  2. TREXALL [Concomitant]
     Dosage: 9 MG, UNK
     Dates: start: 20080101
  3. ENBREL [Suspect]
     Indication: RHEUMATOID ARTHRITIS
     Dosage: 50 MG, QWK
     Dates: start: 20110308
  4. ENBREL [Suspect]
     Dosage: 25 MG, QWK
     Dates: start: 20110325

REACTIONS (6)
  - EYE PRURITUS [None]
  - DEHYDRATION [None]
  - NAUSEA [None]
  - LACRIMATION INCREASED [None]
  - HEADACHE [None]
  - VOMITING [None]
